FAERS Safety Report 19268154 (Version 1)
Quarter: 2021Q2

REPORT INFORMATION
  Report Type: Spontaneous
  Country: US (occurrence: US)
  Receive Date: 20210518
  Receipt Date: 20210518
  Transmission Date: 20210717
  Serious: No
  Sender: FDA-Public Use
  Company Number: US-APOTEX-2021AP008880

PATIENT
  Sex: Male

DRUGS (2)
  1. GUANFACINE EXTENDED RELEASE TABLET [Suspect]
     Active Substance: GUANFACINE
     Indication: ATTENTION DEFICIT HYPERACTIVITY DISORDER
     Dosage: 1 DOSAGE FORM, Q.H.S.
     Route: 065
     Dates: start: 20210320, end: 20210322
  2. ZOLOFT [Concomitant]
     Active Substance: SERTRALINE HYDROCHLORIDE
     Indication: SOCIAL ANXIETY DISORDER
     Dosage: 1 DOSAGE FORM, QD
     Route: 065

REACTIONS (4)
  - Toxicity to various agents [Unknown]
  - Dizziness [Recovered/Resolved]
  - Somnolence [Recovered/Resolved]
  - Sedation [Recovered/Resolved]

NARRATIVE: CASE EVENT DATE: 20210320
